APPROVED DRUG PRODUCT: CLOZAPINE
Active Ingredient: CLOZAPINE
Strength: 12.5MG
Dosage Form/Route: TABLET;ORAL
Application: A075417 | Product #003
Applicant: MYLAN PHARMACEUTICALS INC
Approved: Apr 15, 2010 | RLD: No | RS: No | Type: DISCN